FAERS Safety Report 24318947 (Version 1)
Quarter: 2024Q3

REPORT INFORMATION
  Report Type: Spontaneous
  Country: US (occurrence: US)
  Receive Date: 20240913
  Receipt Date: 20240913
  Transmission Date: 20241017
  Serious: No
  Sender: ALKERMES
  Company Number: US-ALKERMES INC.-ALK-2024-002356

PATIENT
  Sex: Female

DRUGS (1)
  1. VIVITROL [Suspect]
     Active Substance: NALTREXONE
     Indication: Drug use disorder
     Dosage: 380 MILLIGRAM, QMO
     Route: 030
     Dates: end: 20240828

REACTIONS (5)
  - Pain [Not Recovered/Not Resolved]
  - Injection site granuloma [Not Recovered/Not Resolved]
  - Injection site induration [Not Recovered/Not Resolved]
  - Pyrexia [Not Recovered/Not Resolved]
  - Chills [Not Recovered/Not Resolved]

NARRATIVE: CASE EVENT DATE: 20240829
